FAERS Safety Report 7322005-3 (Version None)
Quarter: 2011Q1

REPORT INFORMATION
  Report Type: 
  Country: None (occurrence: None)
  Receive Date: 20110228
  Receipt Date: 20110228
  Transmission Date: 20110831
  Serious: Yes (Death, Hospitalization)
  Sender: FDA-Public Use
  Company Number: DE-ELI_LILLY_AND_COMPANY-DE201006005155

PATIENT
  Sex: Male
  Weight: 66 kg

DRUGS (2)
  1. CISPLATIN [Suspect]
     Indication: NON-SMALL CELL LUNG CANCER STAGE IV
     Dosage: 130 MG, ONCE EVERY 3 WEEKS
     Route: 042
     Dates: start: 20100531
  2. PEMETREXED [Suspect]
     Indication: NON-SMALL CELL LUNG CANCER STAGE IV
     Dosage: 880 MG, ONCE EVERY 3 WEEKS
     Route: 042
     Dates: start: 20100531

REACTIONS (2)
  - DYSPHAGIA [None]
  - LEUKOPENIA [None]
